FAERS Safety Report 7484262-2 (Version None)
Quarter: 2011Q2

REPORT INFORMATION
  Report Type: 
  Country: None (occurrence: None)
  Receive Date: 20110517
  Receipt Date: 20100930
  Transmission Date: 20111010
  Serious: Yes (Hospitalization)
  Sender: FDA-Public Use
  Company Number: US-BAYER-201038259NA

PATIENT
  Age: 43 Year
  Sex: Female

DRUGS (12)
  1. AMLODIPINE BESYLATE [Concomitant]
     Indication: HYPERTENSION
  2. XOPENEX [Concomitant]
     Indication: ASTHMA
  3. PREVACID [Concomitant]
  4. BACLOFEN [Concomitant]
  5. NORVASC [Concomitant]
  6. SIMVASTATIN [Concomitant]
     Indication: HYPERCHOLESTEROLAEMIA
  7. YASMIN [Suspect]
     Indication: ACNE
     Route: 048
     Dates: start: 20020101, end: 20040101
  8. ALBUTEROL [Concomitant]
  9. PREVACID [Concomitant]
     Indication: ABDOMINAL PAIN UPPER
  10. ULTRAM [Concomitant]
  11. YAZ [Suspect]
     Indication: HYPERCHOLESTEROLAEMIA
     Route: 048
  12. PROTONIX [Concomitant]

REACTIONS (5)
  - VOMITING [None]
  - BILIARY COLIC [None]
  - NAUSEA [None]
  - CHOLECYSTITIS CHRONIC [None]
  - ABDOMINAL PAIN UPPER [None]
